FAERS Safety Report 5860944-0 (Version None)
Quarter: 2008Q3

REPORT INFORMATION
  Report Type: 
  Country: None (occurrence: None)
  Receive Date: 20080827
  Receipt Date: 20080814
  Transmission Date: 20090109
  Serious: Yes (Other)
  Sender: FDA-Public Use
  Company Number: US-AMGEN-QUU268642

PATIENT
  Sex: Female
  Weight: 56.3 kg

DRUGS (15)
  1. NEULASTA [Suspect]
     Indication: CHEMOTHERAPY
     Route: 058
     Dates: start: 20080103, end: 20080412
  2. FOLIC ACID [Concomitant]
     Route: 065
  3. ACYCLOVIR [Concomitant]
  4. FENTANYL-25 [Concomitant]
     Route: 061
     Dates: start: 20080101
  5. PROVIGIL [Concomitant]
     Dates: start: 20080101
  6. DEXAMETHASONE TAB [Concomitant]
     Dates: start: 20080101
  7. ONDANSETRON [Concomitant]
     Dates: start: 20080101
  8. COMPAZINE [Concomitant]
     Dates: start: 20080101
  9. SENOKOT [Concomitant]
  10. ADRIAMYCIN PFS [Concomitant]
     Route: 042
     Dates: start: 20080227, end: 20080411
  11. CYTOXAN [Concomitant]
     Route: 042
     Dates: start: 20080227, end: 20080411
  12. PROCRIT [Concomitant]
     Route: 058
     Dates: start: 20080101
  13. ZOFRAN [Concomitant]
  14. VELCADE [Concomitant]
  15. TAXOTERE [Concomitant]

REACTIONS (5)
  - DRUG INEFFECTIVE [None]
  - FATIGUE [None]
  - KYPHOSIS [None]
  - NEUTROPENIA [None]
  - THROMBOCYTOPENIA [None]
